FAERS Safety Report 4911800-3 (Version None)
Quarter: 2006Q1

REPORT INFORMATION
  Report Type: 
  Country: None (occurrence: None)
  Receive Date: 20060213
  Receipt Date: 20060213
  Transmission Date: 20060701
  Serious: Yes (Other)
  Sender: FDA-Public Use
  Company Number: None

PATIENT
  Age: 67 Year
  Sex: Female
  Weight: 58.9676 kg

DRUGS (1)
  1. BONIVA [Suspect]
     Indication: OSTEOPOROSIS
     Dosage: 1 TABLET MONTHLY PO
     Route: 048
     Dates: start: 20060120, end: 20060120

REACTIONS (8)
  - BACK PAIN [None]
  - MOBILITY DECREASED [None]
  - MYALGIA [None]
  - NECK PAIN [None]
  - PYREXIA [None]
  - RENAL DISORDER [None]
  - RENAL PAIN [None]
  - VIRAL INFECTION [None]
